APPROVED DRUG PRODUCT: NITROFURANTOIN
Active Ingredient: NITROFURANTOIN
Strength: 25MG/5ML
Dosage Form/Route: SUSPENSION;ORAL
Application: A219495 | Product #001 | TE Code: AB
Applicant: ANNORA PHARMA PRIVATE LTD
Approved: Jul 2, 2025 | RLD: No | RS: No | Type: RX